FAERS Safety Report 13718634 (Version 1)
Quarter: 2017Q3

REPORT INFORMATION
  Report Type: Spontaneous
  Country: US (occurrence: US)
  Receive Date: 20170705
  Receipt Date: 20170705
  Transmission Date: 20171127
  Serious: No
  Sender: FDA-Public Use
  Company Number: US-BAYER-2017-125245

PATIENT
  Age: 70 Year
  Sex: Female
  Weight: 66.2 kg

DRUGS (2)
  1. MIRALAX [Suspect]
     Active Substance: POLYETHYLENE GLYCOL 3350
     Indication: GASTROINTESTINAL DISORDER
     Dosage: 1 DF, QD
     Route: 048
     Dates: start: 2013
  2. LINZESS [Concomitant]
     Active Substance: LINACLOTIDE
     Dosage: UNK

REACTIONS (5)
  - Inappropriate prescribing [Unknown]
  - Poor quality drug administered [None]
  - Oropharyngeal discomfort [None]
  - Incorrect drug administration duration [Unknown]
  - Product quality issue [None]

NARRATIVE: CASE EVENT DATE: 2013
